FAERS Safety Report 4880324-4 (Version None)
Quarter: 2006Q1

REPORT INFORMATION
  Report Type: 
  Country: None (occurrence: None)
  Receive Date: 20060113
  Receipt Date: 20051209
  Transmission Date: 20060701
  Serious: Yes (Other)
  Sender: FDA-Public Use
  Company Number: US-ROCHE-428404

PATIENT
  Age: 37 Year
  Sex: Male

DRUGS (2)
  1. CLONAZEPAM [Suspect]
     Indication: DRUG USE FOR UNKNOWN INDICATION
     Dosage: INCREASED GRADUALLY OVER ONE WEEK.
     Route: 065
  2. LITHIUM [Concomitant]

REACTIONS (1)
  - DISINHIBITION [None]
